FAERS Safety Report 11793328 (Version 4)
Quarter: 2016Q2

REPORT INFORMATION
  Report Type: Report from Study
  Country: DE (occurrence: CO)
  Receive Date: 20151202
  Receipt Date: 20160418
  Transmission Date: 20160815
  Serious: Yes (Other)
  Sender: FDA-Public Use
  Company Number: DE-ACTELION-A-US2015-128083

PATIENT
  Age: 55 Year
  Sex: Female

DRUGS (7)
  1. SPIRONOLACTONE. [Concomitant]
     Active Substance: SPIRONOLACTONE
  2. VENTAVIS [Suspect]
     Active Substance: ILOPROST
     Dosage: 2 NEBULIZATIONS PER DAY OF 5MCG
     Route: 055
     Dates: start: 20160323
  3. SILDENAFIL. [Concomitant]
     Active Substance: SILDENAFIL
     Dosage: 10 UNK, UNK
  4. OMEPRAZOLE. [Concomitant]
     Active Substance: OMEPRAZOLE
  5. VENTAVIS [Suspect]
     Active Substance: ILOPROST
     Dosage: 1 DF, QID
     Route: 055
  6. VENTAVIS [Suspect]
     Active Substance: ILOPROST
     Indication: PULMONARY HYPERTENSION
     Dosage: UNK UNK, 6ID
     Route: 055
     Dates: start: 20100929
  7. WARFARIN [Concomitant]
     Active Substance: WARFARIN

REACTIONS (8)
  - Tooth loss [Not Recovered/Not Resolved]
  - Ocular hyperaemia [Recovering/Resolving]
  - Product use issue [Unknown]
  - Off label use [Unknown]
  - Loose tooth [Not Recovered/Not Resolved]
  - Tooth loss [Recovered/Resolved]
  - Loose tooth [Not Recovered/Not Resolved]
  - Eye irritation [Recovering/Resolving]

NARRATIVE: CASE EVENT DATE: 20150524
